FAERS Safety Report 10036163 (Version 1)
Quarter: 2014Q1

REPORT INFORMATION
  Report Type: Spontaneous
  Country: GB (occurrence: GB)
  Receive Date: 20140325
  Receipt Date: 20140325
  Transmission Date: 20141002
  Serious: Yes (Other)
  Sender: FDA-Public Use
  Company Number: GB-WATSON-2014-05419

PATIENT
  Age: 59 Year
  Sex: Male

DRUGS (3)
  1. LOSARTAN (UNKNOWN) [Suspect]
     Indication: HYPERTENSION
     Dosage: 25 MG, UNKNOWN
     Route: 048
     Dates: start: 20140221, end: 20140223
  2. SALBUTAMOL [Concomitant]
     Indication: PRODUCT USED FOR UNKNOWN INDICATION
     Dosage: UNK
     Route: 065
  3. MOXONIDINE [Concomitant]
     Indication: PRODUCT USED FOR UNKNOWN INDICATION
     Dosage: 200 ?G, DAILY
     Route: 065

REACTIONS (3)
  - Hypersensitivity [Unknown]
  - Dyspnoea [Recovered/Resolved]
  - Eye irritation [Recovered/Resolved]
